FAERS Safety Report 5140060-6 (Version None)
Quarter: 2006Q4

REPORT INFORMATION
  Report Type: 
  Country: None (occurrence: None)
  Receive Date: 20061024
  Receipt Date: 20061006
  Transmission Date: 20070319
  Serious: Yes (Hospitalization, Other)
  Sender: FDA-Public Use
  Company Number: US200610001370

PATIENT
  Sex: Male

DRUGS (2)
  1. ZYPREXA [Suspect]
     Dosage: UNK, UNK, UNK
  2. CLOZAPINE [Concomitant]

REACTIONS (4)
  - HYPOTHERMIA [None]
  - NAUSEA [None]
  - PNEUMONIA [None]
  - RHABDOMYOLYSIS [None]
